FAERS Safety Report 15570784 (Version 3)
Quarter: 2019Q1

REPORT INFORMATION
  Report Type: Spontaneous
  Country: US (occurrence: US)
  Receive Date: 20181031
  Receipt Date: 20190315
  Transmission Date: 20190417
  Serious: No
  Sender: FDA-Public Use
  Company Number: US-TEVA-2018-US-968850

PATIENT
  Age: 74 Year
  Sex: Male

DRUGS (9)
  1. REPATHA [Suspect]
     Active Substance: EVOLOCUMAB
     Dosage: 1.5YEARS AGO
     Route: 058
  2. WARFARIN SODIUM. [Suspect]
     Active Substance: WARFARIN SODIUM
     Indication: TOOTH DISORDER
     Dosage: TWO DAYS PER WEEK
     Dates: start: 2017
  3. WARFARIN SODIUM. [Suspect]
     Active Substance: WARFARIN SODIUM
     Indication: ANTICOAGULANT THERAPY
     Dosage: FIVE DAYS PER WEEK
     Dates: start: 2017
  4. PROTONIX [Concomitant]
     Active Substance: PANTOPRAZOLE SODIUM
  5. WARFARIN SODIUM. [Suspect]
     Active Substance: WARFARIN SODIUM
     Dates: start: 20181003, end: 20181003
  6. DIOVAN [Concomitant]
     Active Substance: VALSARTAN
  7. VITAMIN B COMPLEX WITH B12 [Concomitant]
  8. DOXYCYCLINE. [Concomitant]
     Active Substance: DOXYCYCLINE
  9. ZANTAC [Concomitant]
     Active Substance: RANITIDINE HYDROCHLORIDE

REACTIONS (6)
  - International normalised ratio fluctuation [Unknown]
  - Fall [Unknown]
  - Injection site discharge [Recovered/Resolved]
  - Wheelchair user [Unknown]
  - Asthenia [Unknown]
  - Limb injury [Unknown]

NARRATIVE: CASE EVENT DATE: 2018
